FAERS Safety Report 6038916-5 (Version None)
Quarter: 2009Q1

REPORT INFORMATION
  Report Type: 
  Country: None (occurrence: None)
  Receive Date: 20090115
  Receipt Date: 20090106
  Transmission Date: 20090719
  Serious: Yes (Death)
  Sender: FDA-Public Use
  Company Number: US-WATSON-2009-00052

PATIENT
  Sex: Female

DRUGS (1)
  1. FENTANYL-100 [Suspect]
     Indication: PAIN
     Dosage: UNK
     Route: 062
     Dates: start: 20080103, end: 20080113

REACTIONS (3)
  - DRUG LEVEL INCREASED [None]
  - DRUG TOXICITY [None]
  - OVERDOSE [None]
